FAERS Safety Report 16353239 (Version 2)
Quarter: 2019Q3

REPORT INFORMATION
  Report Type: Spontaneous
  Country: US (occurrence: US)
  Receive Date: 20190524
  Receipt Date: 20190703
  Transmission Date: 20191004
  Serious: No
  Sender: FDA-Public Use
  Company Number: US-ASTRAZENECA-2019SE66692

PATIENT
  Age: 24713 Day
  Sex: Female
  Weight: 99.8 kg

DRUGS (2)
  1. BENADRYL [Concomitant]
     Active Substance: DIPHENHYDRAMINE HYDROCHLORIDE
     Indication: LIP SWELLING
     Dosage: UNKNOWN
     Route: 065
  2. FASENRA [Suspect]
     Active Substance: BENRALIZUMAB
     Indication: ASTHMA
     Dosage: EVERY 4 WEEKS FOR THE FIRST 3 DOSES AND THEN EVERY 8 WEEKS THEREAFTER
     Route: 058
     Dates: start: 20190426

REACTIONS (5)
  - Pneumonia [Unknown]
  - Therapy cessation [Unknown]
  - Lip swelling [Recovered/Resolved]
  - Bronchitis [Unknown]
  - Headache [Recovered/Resolved]

NARRATIVE: CASE EVENT DATE: 20190426
